FAERS Safety Report 5748975-2 (Version None)
Quarter: 2008Q2

REPORT INFORMATION
  Report Type: 
  Country: None (occurrence: None)
  Receive Date: 20080527
  Receipt Date: 20080521
  Transmission Date: 20081010
  Serious: Yes (Hospitalization)
  Sender: FDA-Public Use
  Company Number: FR-BRISTOL-MYERS SQUIBB COMPANY-14200687

PATIENT
  Age: 95 Year
  Sex: Female

DRUGS (7)
  1. COAPROVEL TABS [Suspect]
     Indication: HYPERTENSION
     Dates: start: 20050524
  2. PLAVIX [Suspect]
  3. ARICEPT [Suspect]
     Indication: DEMENTIA ALZHEIMER'S TYPE
     Dates: start: 20070703, end: 20080118
  4. ZANIDIP [Suspect]
     Indication: HYPERTENSION
     Dates: start: 20050101
  5. ULTRACET [Suspect]
     Indication: ANALGESIA
     Dates: start: 20010101, end: 20080101
  6. EFFEXOR [Concomitant]
     Dates: start: 20080101
  7. RANITIDINE [Concomitant]

REACTIONS (2)
  - ANAEMIA [None]
  - MALAISE [None]
